FAERS Safety Report 17455987 (Version 1)
Quarter: 2020Q1

REPORT INFORMATION
  Report Type: Spontaneous
  Country: US (occurrence: US)
  Receive Date: 20200225
  Receipt Date: 20200225
  Transmission Date: 20200409
  Serious: No
  Sender: FDA-Public Use
  Company Number: US-JNJFOC-20200201359

PATIENT
  Sex: Female
  Weight: 70.37 kg

DRUGS (1)
  1. MENS ROGAINE EXTRA STRENGTH [Suspect]
     Active Substance: MINOXIDIL
     Indication: PRODUCT USED FOR UNKNOWN INDICATION
     Dosage: A LITTLE OVER HALF CUP FULL
     Route: 061

REACTIONS (3)
  - Overdose [Unknown]
  - Product use issue [Unknown]
  - Off label use [Unknown]
